FAERS Safety Report 14978411 (Version 1)
Quarter: 2018Q2

REPORT INFORMATION
  Report Type: Spontaneous
  Country: GB (occurrence: GB)
  Receive Date: 20180606
  Receipt Date: 20180606
  Transmission Date: 20180711
  Serious: Yes (Life-Threatening, Hospitalization, Other)
  Sender: FDA-Public Use
  Company Number: GB-CONCORDIA PHARMACEUTICALS INC.-E2B_00012178

PATIENT
  Age: 67 Year
  Sex: Female
  Weight: 117 kg

DRUGS (9)
  1. ADCAL-D3 [Concomitant]
     Active Substance: CALCIUM CARBONATE\CHOLECALCIFEROL
     Dosage: TAKE 2 TABLETS PER DAY WHILE ON PREDNISOLONE. NOTES FOR DISPENSER: 2 MORE WEEKS THEN STOP.
     Dates: start: 20180329
  2. ALENDRONIC ACID [Concomitant]
     Active Substance: ALENDRONIC ACID
     Dosage: WHILE ON PREDNISOLONE.
     Dates: start: 20180329
  3. PREDNISOLONE. [Suspect]
     Active Substance: PREDNISOLONE
     Indication: TUBULOINTERSTITIAL NEPHRITIS
  4. RANITIDINE. [Concomitant]
     Active Substance: RANITIDINE
     Dosage: NOTES FOR DISPENSER: 2 MORE WEEKS THEN STOP
     Dates: start: 20180329
  5. NAPROXEN. [Concomitant]
     Active Substance: NAPROXEN
     Indication: KNEE ARTHROPLASTY
     Dates: start: 20180102
  6. LAXIDO [Concomitant]
     Active Substance: POLYETHYLENE GLYCOL 3350\POTASSIUM CHLORIDE\SODIUM BICARBONATE\SODIUM CHLORIDE
     Dosage: 2 SACHETS UP TO THREE TIMES A DAY
     Dates: start: 20180215
  7. COTRIMOXAZOLE [Concomitant]
     Active Substance: SULFAMETHOXAZOLE\TRIMETHOPRIM
     Dosage: WHILE ON PREDNISOLONE.?NOTES FOR DISPENSER: 2 MORE WEEKS THEN STOP
     Dates: start: 20180329
  8. FUROSEMIDE. [Concomitant]
     Active Substance: FUROSEMIDE
     Dates: start: 20180329
  9. METFORMIN [Concomitant]
     Active Substance: METFORMIN HYDROCHLORIDE
     Dates: start: 20180501

REACTIONS (1)
  - Hyperglycaemia [Unknown]
